FAERS Safety Report 18311131 (Version 2)
Quarter: 2020Q4

REPORT INFORMATION
  Report Type: Spontaneous
  Country: ZA (occurrence: ZA)
  Receive Date: 20200925
  Receipt Date: 20201001
  Transmission Date: 20210113
  Serious: Yes (Hospitalization, Other)
  Sender: FDA-Public Use
  Company Number: ZA-AUROBINDO-AUR-APL-2020-049639

PATIENT
  Age: 18 Year
  Sex: Female

DRUGS (1)
  1. AMLODIPINE [Suspect]
     Active Substance: AMLODIPINE BESYLATE
     Indication: PRODUCT USED FOR UNKNOWN INDICATION
     Dosage: 250 MILLIGRAM, TOTAL
     Route: 048

REACTIONS (7)
  - Hypovolaemia [Unknown]
  - Intentional overdose [Unknown]
  - Hypotonia [Unknown]
  - Pulmonary oedema [Unknown]
  - Hypotension [Unknown]
  - Depressed level of consciousness [Unknown]
  - Hyponatraemia [Recovered/Resolved]
